FAERS Safety Report 22309812 (Version 4)
Quarter: 2025Q1

REPORT INFORMATION
  Report Type: Report from Study
  Country: US (occurrence: US)
  Receive Date: 20230511
  Receipt Date: 20250326
  Transmission Date: 20250409
  Serious: Yes (Hospitalization, Other)
  Sender: TAKEDA
  Company Number: US-TAKEDA-2023TUS043813

PATIENT
  Age: 70 Year
  Sex: Female

DRUGS (7)
  1. IXAZOMIB [Suspect]
     Active Substance: IXAZOMIB
     Indication: Plasma cell myeloma
  2. IXAZOMIB [Suspect]
     Active Substance: IXAZOMIB
  3. IXAZOMIB [Suspect]
     Active Substance: IXAZOMIB
  4. REVLIMID [Suspect]
     Active Substance: LENALIDOMIDE
     Indication: Plasma cell myeloma
  5. TORSEMIDE [Concomitant]
     Active Substance: TORSEMIDE
  6. XARELTO [Concomitant]
     Active Substance: RIVAROXABAN
     Indication: Atrial fibrillation
  7. POMALYST [Concomitant]
     Active Substance: POMALIDOMIDE

REACTIONS (8)
  - Urinary tract infection [Recovered/Resolved]
  - Incoherent [Not Recovered/Not Resolved]
  - Cellulitis [Recovered/Resolved]
  - Atrial fibrillation [Not Recovered/Not Resolved]
  - White blood cell count decreased [Recovered/Resolved]
  - Decreased activity [Not Recovered/Not Resolved]
  - Peripheral swelling [Recovering/Resolving]
  - Back pain [Recovering/Resolving]

NARRATIVE: CASE EVENT DATE: 20250110
